FAERS Safety Report 9580007 (Version 2)
Quarter: 2013Q4

REPORT INFORMATION
  Report Type: Spontaneous
  Country: GB (occurrence: None)
  Receive Date: 20130930
  Receipt Date: 20131015
  Transmission Date: 20140711
  Serious: Yes (Other)
  Sender: FDA-Public Use
  Company Number: KAD201309-001236

PATIENT
  Age: 66 Year
  Sex: Male

DRUGS (3)
  1. RIBAVIRIN [Suspect]
     Indication: HEPATITIS C
     Dosage: TWICE DAILY, ORAL
     Route: 048
     Dates: start: 20121222
  2. PEGINTERFERON ALFA-2B [Suspect]
     Indication: HEPATITIS C
     Dosage: INJECTION, ONCE A WEEK, SC
     Route: 058
  3. TELAPREVIR [Suspect]
     Indication: HEPATITIS C
     Dosage: 750 MG, THRICE DAILY, PO
     Route: 048
     Dates: start: 20121222

REACTIONS (16)
  - Mouth ulceration [None]
  - Anaemia [None]
  - Miliaria [None]
  - Glossodynia [None]
  - Oral pain [None]
  - Diarrhoea [None]
  - Nausea [None]
  - Dyspepsia [None]
  - Proctalgia [None]
  - Cough [None]
  - Pain [None]
  - Rash generalised [None]
  - Joint injury [None]
  - Glossodynia [None]
  - Blood count abnormal [None]
  - Productive cough [None]
